FAERS Safety Report 8780501 (Version 1)
Quarter: 2012Q4

REPORT INFORMATION
  Report Type: Spontaneous
  Country: US (occurrence: None)
  Receive Date: 20120828
  Receipt Date: 20120828
  Transmission Date: 20130627
  Serious: Yes (Other)
  Sender: FDA-Public Use
  Company Number: INT_00109_2012

PATIENT
  Age: 43 Year
  Sex: Female
  Weight: 98.43 kg

DRUGS (2)
  1. CEFEPIME [Suspect]
     Route: 042
     Dates: start: 20120511, end: 20120523
  2. VANCOMYCIN HCL [Suspect]
     Route: 042
     Dates: start: 20120511, end: 20120525

REACTIONS (4)
  - Back pain [None]
  - Erythema [None]
  - Swelling [None]
  - Rash pruritic [None]
